FAERS Safety Report 25112448 (Version 1)
Quarter: 2025Q1

REPORT INFORMATION
  Report Type: Spontaneous
  Country: US (occurrence: None)
  Receive Date: 20250321
  Receipt Date: 20250321
  Transmission Date: 20250409
  Serious: No
  Sender: FDA-CTU
  Company Number: None

PATIENT
  Sex: Male

DRUGS (4)
  1. VIGABATRIN [Suspect]
     Active Substance: VIGABATRIN
     Indication: Lennox-Gastaut syndrome
     Dosage: FREQUENCY : TWICE A DAY;?OTHER ROUTE : GTUBE;?
     Route: 050
  2. OXCARBAZEPINE [Concomitant]
     Active Substance: OXCARBAZEPINE
  3. PHENOBARBITAL [Concomitant]
     Active Substance: PHENOBARBITAL
  4. VIBATIV [Concomitant]
     Active Substance: TELAVANCIN HYDROCHLORIDE

REACTIONS (2)
  - Drug effect less than expected [None]
  - Seizure [None]
